FAERS Safety Report 11079831 (Version 2)
Quarter: 2015Q2

REPORT INFORMATION
  Report Type: Spontaneous
  Country: CH (occurrence: IT)
  Receive Date: 20150430
  Receipt Date: 20150511
  Transmission Date: 20150821
  Serious: Yes (Life-Threatening)
  Sender: FDA-Public Use
  Company Number: CH-LPDUSPRD-20150057

PATIENT
  Age: 45 Year
  Sex: Female

DRUGS (1)
  1. FERINJECT [Suspect]
     Active Substance: FERRIC CARBOXYMALTOSE
     Dosage: 200 MG
     Route: 042
     Dates: start: 20150114, end: 20150114

REACTIONS (8)
  - Respiratory disorder [Not Recovered/Not Resolved]
  - Sensation of foreign body [Not Recovered/Not Resolved]
  - Hypotension [Not Recovered/Not Resolved]
  - Flushing [Not Recovered/Not Resolved]
  - Face oedema [Not Recovered/Not Resolved]
  - Dyspnoea [Not Recovered/Not Resolved]
  - Localised oedema [Not Recovered/Not Resolved]
  - Presyncope [Not Recovered/Not Resolved]

NARRATIVE: CASE EVENT DATE: 20150114
